FAERS Safety Report 6472444-8 (Version None)
Quarter: 2009Q4

REPORT INFORMATION
  Report Type: 
  Country: None (occurrence: None)
  Receive Date: 20091201
  Receipt Date: 20091116
  Transmission Date: 20100525
  Serious: No
  Sender: FDA-Public Use
  Company Number: 2009AP004066

PATIENT
  Age: 71 Year
  Sex: Female

DRUGS (6)
  1. TRIAMTERENE AND HYDROCHLOROTHIAZIDE [Suspect]
     Indication: HYPERTENSION
     Dosage: 1 DF; QD; PO
     Route: 048
     Dates: start: 20090617
  2. BACTRIM [Suspect]
  3. ALISKIREN FUMARATE [Concomitant]
  4. CLOPIDOGREL FUMARATE [Concomitant]
  5. SIMVASTATIN [Concomitant]
  6. METOPROLOL [Concomitant]

REACTIONS (3)
  - DYSPNOEA [None]
  - PAIN [None]
  - SERUM SICKNESS [None]
